FAERS Safety Report 24862664 (Version 1)
Quarter: 2025Q1

REPORT INFORMATION
  Report Type: Spontaneous
  Country: US (occurrence: US)
  Receive Date: 20250120
  Receipt Date: 20250120
  Transmission Date: 20250408
  Serious: Yes (Other)
  Sender: COOPERSURGICAL
  Company Number: US-COOPERSURGICAL, INC.-2025CPS000087

PATIENT
  Age: 47 Year
  Sex: Female
  Weight: 99.32 kg

DRUGS (1)
  1. PARAGARD T 380A [Suspect]
     Active Substance: COPPER
     Indication: Contraception
     Route: 015
     Dates: start: 20080618

REACTIONS (18)
  - Reproductive complication associated with device [Not Recovered/Not Resolved]
  - Hysterectomy [Recovered/Resolved]
  - Uterine leiomyoma [Unknown]
  - Device breakage [Recovered/Resolved]
  - Foreign body in reproductive tract [Recovered/Resolved]
  - Complication of device removal [Recovered/Resolved]
  - Embedded device [Recovered/Resolved]
  - Pelvic inflammatory disease [Unknown]
  - Benign breast neoplasm [Unknown]
  - Haemorrhoids thrombosed [Unknown]
  - Hypersensitivity [Unknown]
  - Gastrooesophageal reflux disease [Recovered/Resolved]
  - Emotional disorder [Unknown]
  - Hypertension [Unknown]
  - Procedural pain [Unknown]
  - Device use issue [Unknown]
  - Off label use [Unknown]
  - Pain [Unknown]

NARRATIVE: CASE EVENT DATE: 20170101
